FAERS Safety Report 20931007 (Version 2)
Quarter: 2022Q3

REPORT INFORMATION
  Report Type: Spontaneous
  Country: AL (occurrence: AL)
  Receive Date: 20220608
  Receipt Date: 20220706
  Transmission Date: 20221027
  Serious: Yes (Other)
  Sender: FDA-Public Use
  Company Number: AL-MYLANLABS-2022M1042327

PATIENT
  Age: 35 Year
  Sex: Male

DRUGS (1)
  1. DYMISTA [Suspect]
     Active Substance: AZELASTINE HYDROCHLORIDE\FLUTICASONE PROPIONATE
     Indication: Conjunctivitis allergic
     Dosage: 137/50 MICROGRAM 2X2
     Route: 045

REACTIONS (1)
  - Ear disorder [Recovered/Resolved]
